FAERS Safety Report 17319867 (Version 1)
Quarter: 2020Q1

REPORT INFORMATION
  Report Type: Spontaneous
  Country: US (occurrence: US)
  Receive Date: 20200126
  Receipt Date: 20200126
  Transmission Date: 20200409
  Serious: Yes (Other)
  Sender: FDA-Public Use
  Company Number: US-AMGEN-USASP2020012307

PATIENT
  Age: 3 Year
  Sex: Female

DRUGS (1)
  1. ENBREL [Suspect]
     Active Substance: ETANERCEPT
     Indication: JUVENILE IDIOPATHIC ARTHRITIS
     Dosage: UNK
     Route: 065

REACTIONS (7)
  - Splenomegaly [Recovering/Resolving]
  - Pyrexia [Recovering/Resolving]
  - Autoimmune haemolytic anaemia [Recovering/Resolving]
  - Cytopenia [Recovering/Resolving]
  - Lymphadenopathy [Recovering/Resolving]
  - Treatment failure [Unknown]
  - Neutropenia [Recovering/Resolving]
